FAERS Safety Report 14711282 (Version 1)
Quarter: 2018Q2

REPORT INFORMATION
  Report Type: Spontaneous
  Country: US (occurrence: US)
  Receive Date: 20180403
  Receipt Date: 20180403
  Transmission Date: 20180711
  Serious: No
  Sender: FDA-Public Use
  Company Number: US-BAUSCH-BL-2017-003497

PATIENT
  Age: 71 Year
  Sex: Female

DRUGS (1)
  1. TRETINOIN CREAM 0.05% [Suspect]
     Active Substance: TRETINOIN
     Indication: SKIN WRINKLING
     Dosage: 1 APPLICATION TO THE FACE EVERY OTHER DAY
     Route: 061
     Dates: start: 20170109

REACTIONS (3)
  - Off label use [Recovered/Resolved]
  - Application site pruritus [Unknown]
  - Application site erythema [Unknown]

NARRATIVE: CASE EVENT DATE: 201701
